FAERS Safety Report 25908673 (Version 2)
Quarter: 2025Q4

REPORT INFORMATION
  Report Type: Report from Study
  Country: US (occurrence: US)
  Receive Date: 20251010
  Receipt Date: 20251119
  Transmission Date: 20260117
  Serious: No
  Sender: SANDOZ
  Company Number: US-SANDOZ-SDZ2025US073318

PATIENT
  Age: 46 Year
  Sex: Male
  Weight: 74.376 kg

DRUGS (2)
  1. HYRIMOZ [Suspect]
     Active Substance: ADALIMUMAB-ADAZ
     Indication: Colitis
     Dosage: 40 MG, Q2W
     Route: 058
     Dates: start: 20221012, end: 20251001
  2. HYRIMOZ [Suspect]
     Active Substance: ADALIMUMAB-ADAZ
     Indication: Colitis
     Dosage: 40 MG, Q2W
     Route: 058
     Dates: start: 20221012, end: 20251001

REACTIONS (2)
  - Circumstance or information capable of leading to device use error [Unknown]
  - Device malfunction [Unknown]

NARRATIVE: CASE EVENT DATE: 20251001
